APPROVED DRUG PRODUCT: KANAMYCIN SULFATE
Active Ingredient: KANAMYCIN SULFATE
Strength: EQ 500MG BASE/2ML
Dosage Form/Route: INJECTABLE;INJECTION
Application: A065111 | Product #001
Applicant: FRESENIUS KABI USA LLC
Approved: Dec 17, 2002 | RLD: No | RS: No | Type: DISCN